FAERS Safety Report 11122006 (Version 1)
Quarter: 2015Q2

REPORT INFORMATION
  Report Type: Report from Study
  Country: BE (occurrence: BE)
  Receive Date: 20150519
  Receipt Date: 20150519
  Transmission Date: 20150821
  Serious: Yes (Other)
  Sender: FDA-Public Use
  Company Number: BE-SA-2015SA063261

PATIENT
  Age: 43 Year
  Sex: Female
  Weight: 57 kg

DRUGS (6)
  1. LEMTRADA [Suspect]
     Active Substance: ALEMTUZUMAB
     Indication: MULTIPLE SCLEROSIS
     Route: 041
  2. TOPAMAX [Concomitant]
     Active Substance: TOPIRAMATE
  3. BACLOFEN. [Concomitant]
     Active Substance: BACLOFEN
  4. D-CURE [Concomitant]
     Dosage: SOLUTION 1 PER WEEK
  5. ESCITALOPRAM [Concomitant]
     Active Substance: ESCITALOPRAM OXALATE
  6. PRAVASTATIN [Concomitant]
     Active Substance: PRAVASTATIN\PRAVASTATIN SODIUM

REACTIONS (3)
  - Musculoskeletal pain [Recovering/Resolving]
  - Arthritis [Recovering/Resolving]
  - Joint stabilisation [Recovering/Resolving]

NARRATIVE: CASE EVENT DATE: 20150408
